FAERS Safety Report 23739290 (Version 1)
Quarter: 2024Q2

REPORT INFORMATION
  Report Type: Spontaneous
  Country: US (occurrence: US)
  Receive Date: 20240413
  Receipt Date: 20240413
  Transmission Date: 20240715
  Serious: Yes (Other)
  Sender: FDA-Public Use
  Company Number: US-KOANAAP-SML-US-2024-00289

PATIENT
  Age: 64 Year
  Sex: Female

DRUGS (9)
  1. IRINOTECAN [Suspect]
     Active Substance: IRINOTECAN
     Indication: Ductal adenocarcinoma of pancreas
     Dates: end: 202110
  2. GEMCITABINE [Suspect]
     Active Substance: GEMCITABINE
     Indication: Ductal adenocarcinoma of pancreas
     Dates: end: 202201
  3. GEMCITABINE [Suspect]
     Active Substance: GEMCITABINE
     Dates: start: 202210, end: 202212
  4. GEMCITABINE [Suspect]
     Active Substance: GEMCITABINE
     Dosage: 1,000-600 MG/M2, ADJUSTED PER CYTOPENIA; FIRST 2 CYCLE DAYS 1, 8, AND 15 OF 28-DAY CYCLE
     Dates: start: 202302, end: 202307
  5. ERLOTINIB [Suspect]
     Active Substance: ERLOTINIB
     Indication: Ductal adenocarcinoma of pancreas
     Dates: end: 202307
  6. LEUCOVORIN [Suspect]
     Active Substance: LEUCOVORIN\LEUCOVORIN CALCIUM
     Indication: Ductal adenocarcinoma of pancreas
  7. FLUOROURACIL [Suspect]
     Active Substance: FLUOROURACIL
     Indication: Ductal adenocarcinoma of pancreas
  8. OXALIPLATIN [Suspect]
     Active Substance: OXALIPLATIN
     Indication: Ductal adenocarcinoma of pancreas
  9. PACLITAXEL [Suspect]
     Active Substance: PACLITAXEL
     Indication: Ductal adenocarcinoma of pancreas

REACTIONS (7)
  - Drug ineffective [Unknown]
  - Pulmonary mass [Unknown]
  - Neoplasm progression [Unknown]
  - Metastases to liver [Unknown]
  - Metastases to lung [Unknown]
  - Cytopenia [Unknown]
  - Pneumonitis [Recovered/Resolved]

NARRATIVE: CASE EVENT DATE: 20210101
